FAERS Safety Report 6831314-3 (Version None)
Quarter: 2010Q3

REPORT INFORMATION
  Report Type: 
  Country: None (occurrence: None)
  Receive Date: 20100712
  Receipt Date: 20100706
  Transmission Date: 20110219
  Serious: Yes (Other)
  Sender: FDA-Public Use
  Company Number: US-PFIZER INC-2009197299

PATIENT
  Sex: Female
  Weight: 56.689 kg

DRUGS (3)
  1. ESTRING [Suspect]
     Indication: VULVOVAGINAL DISORDER
     Dosage: 2MG, EVERY 3 MONTHS
     Route: 067
     Dates: start: 20040101
  2. ESTRING [Suspect]
     Indication: URINARY TRACT INFECTION
  3. TAPAZOLE [Concomitant]
     Indication: BASEDOW'S DISEASE
     Dosage: UNK

REACTIONS (7)
  - CHEST DISCOMFORT [None]
  - COUGH [None]
  - DRUG INEFFECTIVE [None]
  - DYSURIA [None]
  - GASTROOESOPHAGEAL REFLUX DISEASE [None]
  - MENORRHAGIA [None]
  - UTERINE LEIOMYOMA [None]
